FAERS Safety Report 12080433 (Version 2)
Quarter: 2016Q1

REPORT INFORMATION
  Report Type: Report from Study
  Country: US (occurrence: US)
  Receive Date: 20160216
  Receipt Date: 20160226
  Transmission Date: 20160526
  Serious: Yes (Other)
  Sender: FDA-Public Use
  Company Number: US-BAYER-2016-029552

PATIENT
  Age: 65 Year
  Sex: Male

DRUGS (1)
  1. ADEMPAS [Suspect]
     Active Substance: RIOCIGUAT
     Indication: PULMONARY ARTERIAL HYPERTENSION
     Dosage: 0.5 MG, TID
     Route: 048
     Dates: start: 20160208, end: 20160211

REACTIONS (5)
  - Hypotension [None]
  - Hypotension [None]
  - Syncope [None]
  - Loss of consciousness [None]
  - Dyspnoea [None]

NARRATIVE: CASE EVENT DATE: 20160211
